FAERS Safety Report 7717332-1 (Version None)
Quarter: 2011Q3

REPORT INFORMATION
  Report Type: 
  Country: None (occurrence: None)
  Receive Date: 20110830
  Receipt Date: 20110822
  Transmission Date: 20111222
  Serious: Yes (Death)
  Sender: FDA-Public Use
  Company Number: JP-JNJFOC-20110709141

PATIENT
  Age: 6 Decade
  Sex: Female

DRUGS (3)
  1. OXYCODONE HCL [Concomitant]
     Indication: PRODUCT USED FOR UNKNOWN INDICATION
     Route: 048
     Dates: start: 20110714
  2. FENTANYL CITRATE [Suspect]
     Indication: CANCER PAIN
     Route: 062
     Dates: start: 20110714
  3. MORPHINE HCL ELIXIR [Concomitant]
     Indication: PRODUCT USED FOR UNKNOWN INDICATION
     Route: 054
     Dates: end: 20110714

REACTIONS (5)
  - APPLICATION SITE REACTION [None]
  - APPLICATION SITE PAIN [None]
  - DISEASE PROGRESSION [None]
  - APPLICATION SITE RASH [None]
  - APPLICATION SITE ERYTHEMA [None]
